FAERS Safety Report 4322516-9 (Version None)
Quarter: 2004Q1

REPORT INFORMATION
  Report Type: 
  Country: None (occurrence: None)
  Receive Date: 20040323
  Receipt Date: 20040323
  Transmission Date: 20041129
  Serious: Yes (Death)
  Sender: FDA-Public Use
  Company Number: None

PATIENT
  Age: 59 Year
  Sex: Female
  Weight: 50 kg

DRUGS (4)
  1. HUMIRA [Suspect]
     Dosage: 40 MG SUBCUTANEOUS
     Route: 058
     Dates: start: 20030627, end: 20031201
  2. VIOXX [Concomitant]
  3. MEDROL [Concomitant]
  4. LEDERTREXATO [Concomitant]

REACTIONS (4)
  - GASTROINTESTINAL ULCER [None]
  - NASOPHARYNGITIS [None]
  - SEPSIS [None]
  - TUBERCULOSIS [None]
